FAERS Safety Report 8190168-6 (Version None)
Quarter: 2012Q1

REPORT INFORMATION
  Report Type: 
  Country: None (occurrence: None)
  Receive Date: 20120307
  Receipt Date: 20120227
  Transmission Date: 20120608
  Serious: Yes (Hospitalization)
  Sender: FDA-Public Use
  Company Number: JP-AMGEN-JPNCT2010009642

PATIENT
  Age: 67 Year
  Sex: Female
  Weight: 43 kg

DRUGS (18)
  1. ALOSENN [Concomitant]
     Route: 048
  2. PANITUMUMAB [Suspect]
     Indication: COLORECTAL CANCER
     Dosage: 6 MG/KG, Q2WK
     Route: 041
     Dates: start: 20100825, end: 20101006
  3. PANITUMUMAB [Suspect]
     Dosage: 6 MG/KG, Q2WK
     Route: 041
     Dates: start: 20101104, end: 20101104
  4. LOXOPROFEN [Concomitant]
     Route: 048
  5. ACETAMINOPHEN [Concomitant]
     Route: 048
  6. RINDERON-VG [Concomitant]
     Route: 062
  7. SELBEX [Concomitant]
     Route: 048
  8. ALBUMIN TANNATE [Concomitant]
     Route: 048
  9. ADALAT CC [Concomitant]
     Route: 048
  10. OXALIPLATIN [Suspect]
     Indication: COLORECTAL CANCER
     Dosage: 100 MG, Q2WK
     Route: 041
     Dates: start: 20100825, end: 20101104
  11. MEFENAMIC ACID [Concomitant]
     Route: 048
  12. CEFAZOLIN SODIUM [Concomitant]
     Route: 048
  13. FLUOROURACIL [Suspect]
     Indication: COLORECTAL CANCER
     Dosage: 500 MG, Q2WK
     Route: 040
     Dates: start: 20100825, end: 20101104
  14. FERROUS CITRATE [Concomitant]
     Route: 048
  15. DIFFERIN [Concomitant]
     Route: 062
  16. FLUOROURACIL [Suspect]
     Dosage: 4000 MG, Q2WK
     Route: 041
     Dates: start: 20100825, end: 20101104
  17. LEVOLEUCOVORIN CALCIUM [Suspect]
     Indication: COLORECTAL CANCER
     Dosage: 250 MG, Q2WK
     Route: 041
     Dates: start: 20100825, end: 20101104
  18. LASIX [Concomitant]
     Route: 048

REACTIONS (6)
  - GASTROINTESTINAL INFLAMMATION [None]
  - ANAEMIA [None]
  - BLOOD CREATININE INCREASED [None]
  - PARONYCHIA [None]
  - DIARRHOEA [None]
  - DERMATITIS ACNEIFORM [None]
